FAERS Safety Report 10189071 (Version 1)
Quarter: 2014Q2

REPORT INFORMATION
  Report Type: Spontaneous
  Country: IT (occurrence: IT)
  Receive Date: 20140522
  Receipt Date: 20140522
  Transmission Date: 20141212
  Serious: No
  Sender: FDA-Public Use
  Company Number: PHHY2014IT061330

PATIENT
  Age: 70 Year
  Sex: Female

DRUGS (1)
  1. NILOTINIB [Suspect]
     Dosage: 600 MG, DAILY
     Route: 048
     Dates: start: 20140423, end: 20140507

REACTIONS (1)
  - Electrocardiogram QT prolonged [Recovering/Resolving]
